FAERS Safety Report 5047588-8 (Version None)
Quarter: 2006Q2

REPORT INFORMATION
  Report Type: 
  Country: None (occurrence: None)
  Receive Date: 20060601
  Receipt Date: 20060327
  Transmission Date: 20061013
  Serious: No
  Sender: FDA-Public Use
  Company Number: 2006PV010987

PATIENT
  Age: 70 Year
  Sex: Female
  Weight: 99.3377 kg

DRUGS (2)
  1. BYETTA [Suspect]
     Indication: DIABETES MELLITUS NON-INSULIN-DEPENDENT
     Dosage: 5 MCG BID SC
     Route: 058
     Dates: start: 20060324
  2. METFORMIN [Concomitant]

REACTIONS (3)
  - DECREASED APPETITE [None]
  - SINUS HEADACHE [None]
  - WEIGHT DECREASED [None]
